FAERS Safety Report 22140443 (Version 1)
Quarter: 2023Q1

REPORT INFORMATION
  Report Type: Spontaneous
  Country: US (occurrence: US)
  Receive Date: 20230327
  Receipt Date: 20230327
  Transmission Date: 20230418
  Serious: No
  Sender: FDA-Public Use
  Company Number: US-TEVA-2023-US-2865900

PATIENT
  Age: 78 Year
  Sex: Female

DRUGS (3)
  1. CLONIDINE HYDROCHLORIDE [Suspect]
     Active Substance: CLONIDINE HYDROCHLORIDE
     Indication: Hypertension
     Dosage: .1 MILLIGRAM DAILY;
     Route: 062
  2. TRAMADOL [Concomitant]
     Active Substance: TRAMADOL
     Indication: Product used for unknown indication
     Dosage: DAILY
     Route: 065
  3. FAMOTIDINE [Concomitant]
     Active Substance: FAMOTIDINE
     Indication: Product used for unknown indication
     Dosage: DAILY
     Route: 065

REACTIONS (11)
  - Skin reaction [Unknown]
  - Erythema [Unknown]
  - Urticaria [Unknown]
  - Application site rash [Unknown]
  - Drug intolerance [Unknown]
  - Skin erosion [Unknown]
  - Application site burn [Unknown]
  - Application site scar [Unknown]
  - Blood pressure increased [Unknown]
  - Product storage error [Unknown]
  - Poor quality product administered [Unknown]
